FAERS Safety Report 5414880-4 (Version None)
Quarter: 2007Q3

REPORT INFORMATION
  Report Type: 
  Country: None (occurrence: None)
  Receive Date: 20070815
  Receipt Date: 20070507
  Transmission Date: 20080115
  Serious: No
  Sender: FDA-Public Use
  Company Number: US-KINGPHARMUSA00001-K200700562

PATIENT

DRUGS (7)
  1. SEPTRA [Suspect]
     Indication: INFECTION
     Dosage: 800 MG, QD
     Route: 048
     Dates: start: 20070420
  2. ISOSORBIDE DINITRATE [Concomitant]
     Indication: CHEST PAIN
     Dosage: 10 MG, QD
     Route: 048
  3. METOPROLOL SUCCINATE [Concomitant]
     Indication: HYPERTENSION
     Dosage: 100 MG, BID
     Route: 048
  4. LISINOPRIL [Concomitant]
     Indication: HYPERTENSION
     Dosage: 70 MG, QD
     Route: 048
  5. HYDROCHLOROTHIAZIDE [Concomitant]
     Indication: HYPERTENSION
     Dosage: 37.5 UNK, QD
     Route: 048
  6. ZOCOR [Concomitant]
     Indication: BLOOD CHOLESTEROL
     Dosage: 80 MG, QD
     Route: 048
  7. METFORMIN HCL [Concomitant]
     Indication: DIABETES MELLITUS
     Dosage: 500 MG, BID
     Route: 048
     Dates: start: 19990101

REACTIONS (4)
  - ANOREXIA [None]
  - ASTHENIA [None]
  - LIP SWELLING [None]
  - NAUSEA [None]
